FAERS Safety Report 6166970-9 (Version None)
Quarter: 2009Q2

REPORT INFORMATION
  Report Type: 
  Country: None (occurrence: None)
  Receive Date: 20090423
  Receipt Date: 20090423
  Transmission Date: 20091009
  Serious: Yes (Life-Threatening)
  Sender: FDA-Public Use
  Company Number: None

PATIENT
  Age: 50 Year
  Sex: Female
  Weight: 113.3993 kg

DRUGS (2)
  1. HUMIRA [Suspect]
     Indication: PSORIASIS
     Dosage: 40 MG SUBCUTANEOUS INJECTION ONCE EVERY 2 WEEKS SQ
     Route: 058
     Dates: start: 20060112, end: 20090108
  2. HUMIRA [Suspect]
     Indication: PSORIATIC ARTHROPATHY
     Dosage: 40 MG SUBCUTANEOUS INJECTION ONCE EVERY 2 WEEKS SQ
     Route: 058
     Dates: start: 20060112, end: 20090108

REACTIONS (7)
  - CULTURE POSITIVE [None]
  - DIARRHOEA [None]
  - INFLUENZA LIKE ILLNESS [None]
  - NAUSEA [None]
  - PATHOGEN RESISTANCE [None]
  - PSEUDOMONAS INFECTION [None]
  - SINUSITIS [None]
